FAERS Safety Report 5484069-1 (Version None)
Quarter: 2007Q4

REPORT INFORMATION
  Report Type: 
  Country: None (occurrence: None)
  Receive Date: 20071012
  Receipt Date: 20071009
  Transmission Date: 20080405
  Serious: Yes (Other)
  Sender: FDA-Public Use
  Company Number: GB-BRISTOL-MYERS SQUIBB COMPANY-13868872

PATIENT
  Age: 2 Year
  Sex: Male
  Weight: 12 kg

DRUGS (2)
  1. DIDANOSINE [Suspect]
     Indication: HIV TEST POSITIVE
  2. TENOFOVIR [Suspect]
     Indication: HIV TEST POSITIVE

REACTIONS (3)
  - BLOOD CREATININE INCREASED [None]
  - BLOOD PHOSPHORUS DECREASED [None]
  - CD4 LYMPHOCYTES DECREASED [None]
